FAERS Safety Report 23140172 (Version 1)
Quarter: 2023Q4

REPORT INFORMATION
  Report Type: Spontaneous
  Country: US (occurrence: US)
  Receive Date: 20231102
  Receipt Date: 20231102
  Transmission Date: 20240110
  Serious: Yes (Other)
  Sender: FDA-Public Use
  Company Number: US-TEVA-2023-US-2941133

PATIENT
  Age: 96 Year
  Sex: Female
  Weight: 22.68 kg

DRUGS (2)
  1. CLONIDINE [Suspect]
     Active Substance: CLONIDINE
     Indication: Product used for unknown indication
     Dosage: FORM STRENGTH: 0.2 MG/24HR
     Route: 065
     Dates: start: 202201
  2. CLONIDINE [Suspect]
     Active Substance: CLONIDINE
     Dosage: FORM STRENGTH: 0.1 MG/24HR
     Route: 065

REACTIONS (2)
  - Heart rate decreased [Unknown]
  - Fatigue [Unknown]

NARRATIVE: CASE EVENT DATE: 20220401
